FAERS Safety Report 7422285-X (Version None)
Quarter: 2011Q2

REPORT INFORMATION
  Report Type: 
  Country: None (occurrence: None)
  Receive Date: 20110419
  Receipt Date: 20110407
  Transmission Date: 20111010
  Serious: Yes (Other)
  Sender: FDA-Public Use
  Company Number: DE-BIOGENIDEC-2011BI012552

PATIENT
  Age: 0 Day
  Sex: Female

DRUGS (2)
  1. TYSABRI [Suspect]
     Route: 042
     Dates: start: 20100801, end: 20101201
  2. TYSABRI [Suspect]
     Indication: DRUG EXPOSURE DURING PREGNANCY
     Route: 042
     Dates: start: 20070101, end: 20100201

REACTIONS (6)
  - ANAEMIA NEONATAL [None]
  - FOETAL GROWTH RESTRICTION [None]
  - UMBILICAL CORD ABNORMALITY [None]
  - JAUNDICE NEONATAL [None]
  - THROMBOCYTOPENIA NEONATAL [None]
  - SMALL FOR DATES BABY [None]
